FAERS Safety Report 4526041-1 (Version None)
Quarter: 2004Q4

REPORT INFORMATION
  Report Type: 
  Country: None (occurrence: None)
  Receive Date: 20041129
  Receipt Date: 20040825
  Transmission Date: 20050328
  Serious: Yes (Hospitalization)
  Sender: FDA-Public Use
  Company Number: USA040876475

PATIENT
  Age: 39 Year
  Sex: Female

DRUGS (2)
  1. ZYPREXA [Suspect]
     Indication: BIPOLAR DISORDER
     Dates: start: 20040801, end: 20040820
  2. DEPAKOTE [Concomitant]

REACTIONS (1)
  - AFFECT LABILITY [None]
